FAERS Safety Report 10017487 (Version 2)
Quarter: 2014Q1

REPORT INFORMATION
  Report Type: Report from Study
  Country: ES (occurrence: ES)
  Receive Date: 20140318
  Receipt Date: 20140320
  Transmission Date: 20141002
  Serious: Yes (Other)
  Sender: FDA-Public Use
  Company Number: ES-UCBSA-114736

PATIENT
  Age: 58 Year
  Sex: Female
  Weight: 73 kg

DRUGS (7)
  1. CERTOLIZUMAB PEGOL [Suspect]
     Indication: RHEUMATOID ARTHRITIS
     Route: 058
     Dates: start: 20130110, end: 20130207
  2. METHOTREXATE [Concomitant]
     Route: 058
     Dates: start: 20120412
  3. PREDNISONE [Concomitant]
     Route: 048
     Dates: start: 20120914
  4. NAPROXEN [Concomitant]
     Route: 048
     Dates: start: 20120914
  5. CALCIUM CARBONATE/ CHOLECALCIFEROL [Concomitant]
     Dosage: DOSE: 2500/800 IU DAILY
     Route: 048
     Dates: start: 20090511
  6. OMEPRAZOL [Concomitant]
     Route: 048
     Dates: start: 20080707
  7. FOLINIC ACID [Concomitant]
     Route: 048
     Dates: start: 20080707

REACTIONS (1)
  - Cutaneous vasculitis [Recovered/Resolved]
